FAERS Safety Report 7238130-1 (Version None)
Quarter: 2011Q1

REPORT INFORMATION
  Report Type: 
  Country: None (occurrence: None)
  Receive Date: 20110119
  Receipt Date: 20110119
  Transmission Date: 20110831
  Serious: No
  Sender: FDA-Public Use
  Company Number: None

PATIENT
  Age: 30 Year
  Sex: Female
  Weight: 113.3993 kg

DRUGS (1)
  1. TRIAD STERILE ALCOHOL PREP PAD TRIAD GROUP [Suspect]
     Indication: INJECTION
     Dates: start: 20070901, end: 20110113

REACTIONS (4)
  - CONTUSION [None]
  - SCAB [None]
  - CELLULITIS [None]
  - IMPAIRED HEALING [None]
